FAERS Safety Report 8291215-3 (Version None)
Quarter: 2012Q2

REPORT INFORMATION
  Report Type: 
  Country: None (occurrence: None)
  Receive Date: 20120417
  Receipt Date: 20120411
  Transmission Date: 20120825
  Serious: Yes (Other)
  Sender: FDA-Public Use
  Company Number: BR-BAYER-2012-035770

PATIENT
  Age: 64 Year
  Sex: Male
  Weight: 67.12 kg

DRUGS (5)
  1. NEXAVAR [Suspect]
     Indication: METASTASES TO LUNG
     Dosage: 3 DF, QD
     Route: 048
     Dates: start: 20120101, end: 20120201
  2. NEXAVAR [Suspect]
     Dosage: 2 DF, BID
     Route: 048
     Dates: start: 20120301
  3. LOSARTAN POTASSIUM AND HYDROCHLOROTHIAZIDE [Concomitant]
     Indication: HYPERTENSION
     Dosage: 1 DF, QD
     Route: 048
  4. NEXAVAR [Suspect]
     Indication: HEPATIC NEOPLASM MALIGNANT
     Dosage: 2 DF, BID
     Route: 048
     Dates: start: 20111101, end: 20111201
  5. ENTECAVIR [Concomitant]
     Indication: HEPATITIS B
     Dosage: 1 DF, QD
     Route: 048
     Dates: start: 20090101

REACTIONS (5)
  - WEIGHT DECREASED [None]
  - PLICATED TONGUE [None]
  - SKIN FISSURES [None]
  - SKIN EXFOLIATION [None]
  - BURNING SENSATION [None]
